FAERS Safety Report 7307270-0 (Version None)
Quarter: 2011Q1

REPORT INFORMATION
  Report Type: 
  Country: None (occurrence: None)
  Receive Date: 20110223
  Receipt Date: 20110215
  Transmission Date: 20110831
  Serious: No
  Sender: FDA-Public Use
  Company Number: US-PFIZER INC-2010162584

PATIENT
  Age: 66 Year
  Sex: Male
  Weight: 86.168 kg

DRUGS (1)
  1. ADVIL [Suspect]
     Indication: BACK PAIN
     Dosage: 1 LIQUI-GEL, UNKNOWN FREQUENCY
     Route: 048
     Dates: start: 20101129, end: 20101130

REACTIONS (1)
  - NASAL ODOUR [None]
